FAERS Safety Report 8338405 (Version 3)
Quarter: 2013Q4

REPORT INFORMATION
  Report Type: Spontaneous
  Country: US (occurrence: US)
  Receive Date: 20120117
  Receipt Date: 20131209
  Transmission Date: 20140711
  Serious: Yes (Hospitalization)
  Sender: FDA-Public Use
  Company Number: US-BAYER-2012-003648

PATIENT
  Age: 42 Year
  Sex: Female
  Weight: 63.49 kg

DRUGS (6)
  1. YAZ [Suspect]
     Indication: PREMENSTRUAL SYNDROME
     Dosage: UNK
     Route: 048
     Dates: start: 2006, end: 2008
  2. YASMIN [Suspect]
     Indication: PREMENSTRUAL SYNDROME
     Dosage: UNK
  3. SYNTHROID [Concomitant]
     Dosage: UNK
  4. ALEVE [Concomitant]
     Dosage: UNK
  5. CLARITHROMYCIN [Concomitant]
     Dosage: 500 MG, UNK
  6. BIAXIN [Concomitant]
     Dosage: 500 MG, UNK

REACTIONS (5)
  - Gallbladder injury [None]
  - Pain [None]
  - Fear [None]
  - Biliary dyskinesia [None]
  - Cholecystitis [None]
